FAERS Safety Report 25211502 (Version 2)
Quarter: 2025Q2

REPORT INFORMATION
  Report Type: Report from Study
  Country: US (occurrence: US)
  Receive Date: 20250418
  Receipt Date: 20250511
  Transmission Date: 20250716
  Serious: No
  Sender: ABBVIE
  Company Number: US-ABBVIE-6228558

PATIENT
  Sex: Female

DRUGS (1)
  1. SKYRIZI [Suspect]
     Active Substance: RISANKIZUMAB-RZAA
     Indication: Psoriasis
     Route: 058
     Dates: start: 20240423

REACTIONS (4)
  - Eye swelling [Recovering/Resolving]
  - Acne cystic [Recovering/Resolving]
  - Rash papular [Recovering/Resolving]
  - Papule [Recovering/Resolving]
